FAERS Safety Report 15220861 (Version 1)
Quarter: 2018Q3

REPORT INFORMATION
  Report Type: Spontaneous
  Country: US (occurrence: US)
  Receive Date: 20180703
  Receipt Date: 20180703
  Transmission Date: 20181010
  Serious: Yes (Hospitalization)
  Sender: FDA-Public Use
  Company Number: None

PATIENT
  Age: 37 Year
  Sex: Female
  Weight: 118.4 kg

DRUGS (25)
  1. GABAPENTIN. [Concomitant]
     Active Substance: GABAPENTIN
  2. HYDROCHLOROTHIAZIDE. [Concomitant]
     Active Substance: HYDROCHLOROTHIAZIDE
  3. TRAMADOL. [Concomitant]
     Active Substance: TRAMADOL
  4. FLUCONAZOLE. [Concomitant]
     Active Substance: FLUCONAZOLE
  5. SENNA [Concomitant]
     Active Substance: SENNA LEAF\SENNOSIDES\SENNOSIDES A AND B
  6. MERCAPTOPURINE. [Suspect]
     Active Substance: MERCAPTOPURINE
     Dates: end: 20180621
  7. FEXOFENADINE [Concomitant]
     Active Substance: FEXOFENADINE\FEXOFENADINE HYDROCHLORIDE
  8. PANTOPRAZOLE [Concomitant]
     Active Substance: PANTOPRAZOLE
  9. SULFAMETHOXAZOLE?TRIMETHOPRIM [Concomitant]
     Active Substance: SULFAMETHOXAZOLE\TRIMETHOPRIM
  10. ONCASPAR [Suspect]
     Active Substance: PEGASPARGASE
     Dates: end: 20180531
  11. DOCUSATE [Concomitant]
     Active Substance: DOCUSATE
  12. LEVOFLOXACIN. [Concomitant]
     Active Substance: LEVOFLOXACIN
  13. LISINOPRIL. [Concomitant]
     Active Substance: LISINOPRIL
  14. OXYCODONE [Concomitant]
     Active Substance: OXYCODONE
  15. CYCLOPHOSPHAMIDE. [Suspect]
     Active Substance: CYCLOPHOSPHAMIDE
     Dates: end: 20180615
  16. DAUNORUBICIN [Suspect]
     Active Substance: DAUNORUBICIN
     Dates: end: 20180604
  17. NORETHINDRONE. [Concomitant]
     Active Substance: NORETHINDRONE
  18. PROCHLORPERAZINE. [Concomitant]
     Active Substance: PROCHLORPERAZINE
  19. DEXAMETHASONE. [Suspect]
     Active Substance: DEXAMETHASONE
     Dates: end: 20180603
  20. METHOTREXATE. [Suspect]
     Active Substance: METHOTREXATE
     Dates: end: 20180622
  21. CYTARABINE. [Suspect]
     Active Substance: CYTARABINE
     Dates: end: 20180625
  22. VINCRISTINE SULFATE. [Suspect]
     Active Substance: VINCRISTINE SULFATE
     Dates: end: 20180604
  23. ACYCLOVIR. [Concomitant]
     Active Substance: ACYCLOVIR
  24. INSULIN LISPRO [Concomitant]
     Active Substance: INSULIN LISPRO
  25. ONDANSETRON [Concomitant]
     Active Substance: ONDANSETRON

REACTIONS (2)
  - Bilirubin conjugated increased [None]
  - Blood bilirubin increased [None]

NARRATIVE: CASE EVENT DATE: 20180629
